FAERS Safety Report 4627448-4 (Version None)
Quarter: 2005Q2

REPORT INFORMATION
  Report Type: 
  Country: None (occurrence: None)
  Receive Date: 20050405
  Receipt Date: 20050310
  Transmission Date: 20051028
  Serious: Yes (Death)
  Sender: FDA-Public Use
  Company Number: TH-MERCK-0503THA00008

PATIENT
  Age: 45 Year
  Sex: Female

DRUGS (11)
  1. CANCIDAS [Suspect]
     Indication: FUNGAL INFECTION
     Route: 041
     Dates: start: 20050122, end: 20050122
  2. CANCIDAS [Suspect]
     Route: 041
     Dates: start: 20050123, end: 20050128
  3. CYCLOSPORINE [Concomitant]
     Route: 042
  4. CYCLOPHOSPHAMIDE [Concomitant]
     Indication: LEUKAEMIA
     Route: 065
  5. DOXORUBICIN [Concomitant]
     Indication: LEUKAEMIA
     Route: 065
  6. ESCITALOPRAM OXALATE [Concomitant]
     Route: 065
  7. MEDROXYPROGESTERONE ACETATE [Concomitant]
     Route: 065
  8. CEFEPIME [Concomitant]
     Route: 042
  9. VANCOMYCIN [Concomitant]
     Route: 065
  10. ACYCLOVIR [Concomitant]
     Route: 042
  11. OMEPRAZOLE [Concomitant]
     Route: 065

REACTIONS (4)
  - HEPATIC ENZYME INCREASED [None]
  - HEPATIC NECROSIS [None]
  - JAUNDICE [None]
  - PNEUMOCYSTIS JIROVECI INFECTION [None]
